FAERS Safety Report 4509810-3 (Version None)
Quarter: 2004Q4

REPORT INFORMATION
  Report Type: 
  Country: None (occurrence: None)
  Receive Date: 20041124
  Receipt Date: 20040820
  Transmission Date: 20050328
  Serious: No
  Sender: FDA-Public Use
  Company Number: US-BRISTOL-MYERS SQUIBB COMPANY-12683504

PATIENT

DRUGS (1)
  1. AVALIDE [Suspect]
     Indication: HYPERTENSION

REACTIONS (2)
  - BLOOD URIC ACID INCREASED [None]
  - GOUT [None]
